FAERS Safety Report 9344014 (Version 1)
Quarter: 2013Q2

REPORT INFORMATION
  Report Type: Spontaneous
  Country: IT (occurrence: None)
  Receive Date: 20130610
  Receipt Date: 20130610
  Transmission Date: 20140414
  Serious: Yes (Hospitalization)
  Sender: FDA-Public Use
  Company Number: 2013AP004573

PATIENT
  Age: 34 Year
  Sex: Male

DRUGS (5)
  1. ZOLPIDEM TARTRATE (ZOLPIDEM TARTRATE) [Suspect]
     Indication: INSOMNIA
     Route: 048
     Dates: start: 20130410, end: 20130411
  2. LORAZEPAM (LORAZEPAM) [Suspect]
     Indication: INSOMNIA
     Route: 048
     Dates: start: 20130411, end: 20130411
  3. LEVOMEPROMAZINE MALEATE [Suspect]
     Indication: INSOMNIA
     Route: 048
     Dates: start: 20130406, end: 20130411
  4. AMISULPRIDE (AMISULPRIDE) [Concomitant]
  5. CARBOLITHIUM (LITHIUM CARBONATE) [Concomitant]

REACTIONS (5)
  - Bradykinesia [None]
  - Dyspnoea [None]
  - Oxygen saturation decreased [None]
  - Bradyphrenia [None]
  - Sopor [None]
